FAERS Safety Report 23992375 (Version 2)
Quarter: 2024Q3

REPORT INFORMATION
  Report Type: Report from Study
  Country: CA (occurrence: CA)
  Receive Date: 20240620
  Receipt Date: 20240720
  Transmission Date: 20241016
  Serious: No
  Sender: JOHNSON AND JOHNSON
  Company Number: CA-JNJFOC-20240606010

PATIENT
  Age: 47 Year
  Sex: Male

DRUGS (1)
  1. SIMPONI [Suspect]
     Active Substance: GOLIMUMAB
     Indication: Ankylosing spondylitis
     Dosage: STRENGTH:  50.00 MG / 0.50 ML
     Route: 058
     Dates: start: 20240401

REACTIONS (2)
  - Device deployment issue [Unknown]
  - Underdose [Unknown]

NARRATIVE: CASE EVENT DATE: 20240601
